FAERS Safety Report 10246752 (Version 1)
Quarter: 2014Q2

REPORT INFORMATION
  Report Type: Spontaneous
  Country: US (occurrence: None)
  Receive Date: 20140617
  Receipt Date: 20140617
  Transmission Date: 20141212
  Serious: Yes (Disabling)
  Sender: FDA-Public Use
  Company Number: None

PATIENT
  Age: 68 Year
  Sex: Female
  Weight: 77.11 kg

DRUGS (1)
  1. RISPERDAL CONSTA [Suspect]
     Indication: PSYCHOTIC DISORDER
     Dosage: 25 MG INJECTION TWICE A MONTH

REACTIONS (12)
  - Serum serotonin increased [None]
  - Norepinephrine increased [None]
  - Epinephrine increased [None]
  - Nervous system disorder [None]
  - Incontinence [None]
  - Lung disorder [None]
  - Weight increased [None]
  - Blood insulin increased [None]
  - Blood prolactin increased [None]
  - Mental impairment [None]
  - Memory impairment [None]
  - Disturbance in attention [None]
